FAERS Safety Report 4561285-4 (Version None)
Quarter: 2005Q1

REPORT INFORMATION
  Report Type: 
  Country: None (occurrence: None)
  Receive Date: 20050121
  Receipt Date: 20050105
  Transmission Date: 20050727
  Serious: No
  Sender: FDA-Public Use
  Company Number: S04-CAN-06657-01

PATIENT
  Age: 70 Year
  Sex: Male
  Weight: 113.3993 kg

DRUGS (6)
  1. TIAZAC [Suspect]
     Indication: HYPERTENSION
     Dosage: 360 MG QD PO
     Route: 048
     Dates: start: 20040902, end: 20040916
  2. TIAZAC [Suspect]
     Indication: HYPERTENSION
     Dosage: 240 MG QD PO
     Route: 048
     Dates: start: 20040806, end: 20040902
  3. ACETYLSALICYLIC ACID SRT [Concomitant]
  4. ATACAND [Concomitant]
  5. GLYBURIDE [Concomitant]
  6. NORVASC [Concomitant]

REACTIONS (13)
  - BLOOD ALBUMIN DECREASED [None]
  - BLOOD ALKALINE PHOSPHATASE INCREASED [None]
  - BLOOD CREATININE INCREASED [None]
  - BLOOD GLUCOSE INCREASED [None]
  - BLOOD UREA INCREASED [None]
  - BLOOD URINE PRESENT [None]
  - DIZZINESS [None]
  - FEELING ABNORMAL [None]
  - GLYCOSYLATED HAEMOGLOBIN INCREASED [None]
  - HYPERTENSIVE CRISIS [None]
  - LYMPHOCYTE PERCENTAGE DECREASED [None]
  - PROTEIN URINE [None]
  - RED CELL DISTRIBUTION WIDTH INCREASED [None]
